FAERS Safety Report 18624811 (Version 1)
Quarter: 2020Q4

REPORT INFORMATION
  Report Type: Spontaneous
  Country: PL (occurrence: PL)
  Receive Date: 20201216
  Receipt Date: 20201216
  Transmission Date: 20210114
  Serious: Yes (Other)
  Sender: FDA-Public Use
  Company Number: NVSC2020PL328984

PATIENT
  Age: 52 Year
  Sex: Female

DRUGS (4)
  1. KADCYLA [Suspect]
     Active Substance: ADO-TRASTUZUMAB EMTANSINE
     Indication: HER2 POSITIVE BREAST CANCER
     Dosage: UNK (2ND LINE TREATMENT, ONGOING)
     Route: 065
     Dates: start: 20200325
  2. DOCETAXEL. [Suspect]
     Active Substance: DOCETAXEL
     Indication: HER2 POSITIVE BREAST CANCER
     Dosage: 8 CYCLES
     Route: 065
     Dates: start: 20190720, end: 20191221
  3. PERJETA [Suspect]
     Active Substance: PERTUZUMAB
     Indication: HER2 POSITIVE BREAST CANCER
     Dosage: 8 CYCLES
     Route: 065
     Dates: start: 20190720, end: 20191221
  4. HERCEPTIN [Suspect]
     Active Substance: TRASTUZUMAB
     Indication: HER2 POSITIVE BREAST CANCER
     Dosage: 8 CYCLES
     Route: 065
     Dates: start: 20190720, end: 20191221

REACTIONS (8)
  - Breast pain [Unknown]
  - Aspartate aminotransferase increased [Unknown]
  - Arthralgia [Unknown]
  - Bone pain [Unknown]
  - Alanine aminotransferase increased [Unknown]
  - Metastasis [Unknown]
  - Therapy partial responder [Unknown]
  - Rash papular [Unknown]
